FAERS Safety Report 5661623-5 (Version None)
Quarter: 2008Q1

REPORT INFORMATION
  Report Type: 
  Country: None (occurrence: None)
  Receive Date: 20080312
  Receipt Date: 20080205
  Transmission Date: 20080703
  Serious: Yes (Life-Threatening)
  Sender: FDA-Public Use
  Company Number: ID-BAYER-200812796GPV

PATIENT
  Sex: Male
  Weight: 70 kg

DRUGS (1)
  1. ULTRAVIST 370 [Suspect]
     Indication: COMPUTERISED TOMOGRAM
     Route: 040
     Dates: start: 20080131

REACTIONS (1)
  - MUSCULOSKELETAL DISCOMFORT [None]
